FAERS Safety Report 5597798-6 (Version None)
Quarter: 2007Q4

REPORT INFORMATION
  Report Type: 
  Country: None (occurrence: None)
  Receive Date: 20071221
  Receipt Date: 20071018
  Transmission Date: 20080405
  Serious: No
  Sender: FDA-Public Use
  Company Number: SPV1-2007-04636

PATIENT
  Age: 13 Year
  Sex: Female
  Weight: 44.4 kg

DRUGS (1)
  1. VYVANSE [Suspect]
     Indication: ATTENTION DEFICIT/HYPERACTIVITY DISORDER
     Dosage: 50 MG, 1X/DAY:QD, ORAL
     Route: 048
     Dates: start: 20070821

REACTIONS (4)
  - EYE SWELLING [None]
  - OFF LABEL USE [None]
  - PRURITUS [None]
  - RASH [None]
